FAERS Safety Report 8345367-7 (Version None)
Quarter: 2012Q2

REPORT INFORMATION
  Report Type: 
  Country: None (occurrence: None)
  Receive Date: 20120504
  Receipt Date: 20120423
  Transmission Date: 20120825
  Serious: Yes (Hospitalization, Other)
  Sender: FDA-Public Use
  Company Number: 2012US006410

PATIENT
  Age: 65 Year
  Sex: Male
  Weight: 78.8 kg

DRUGS (3)
  1. ALOXI [Suspect]
     Indication: PROPHYLAXIS OF NAUSEA AND VOMITING
     Dosage: 0.50 MG, SINGLE, ORAL
     Route: 048
     Dates: start: 20120322, end: 20120322
  2. PALONOSETRON (PALONOSETRON) 0.50MG [Suspect]
     Indication: PROPHYLAXIS OF NAUSEA AND VOMITING
     Dosage: 0.50 MG, SINGLE, ORAL,
     Route: 048
     Dates: start: 20120223, end: 20120223
  3. PALONOSETRON (PALONOSETRON) 0.50MG [Suspect]
     Indication: PROPHYLAXIS OF NAUSEA AND VOMITING
     Dosage: 0.50 MG, SINGLE, ORAL,
     Route: 048
     Dates: start: 20120308, end: 20120308

REACTIONS (5)
  - ECCHYMOSIS [None]
  - CONTUSION [None]
  - IDIOPATHIC THROMBOCYTOPENIC PURPURA [None]
  - MELAENA [None]
  - GASTRIC HAEMORRHAGE [None]
